FAERS Safety Report 11865124 (Version 1)
Quarter: 2015Q4

REPORT INFORMATION
  Report Type: Spontaneous
  Country: SK (occurrence: SK)
  Receive Date: 20151223
  Receipt Date: 20151223
  Transmission Date: 20160305
  Serious: Yes (Hospitalization, Other)
  Sender: FDA-Public Use
  Company Number: SK-AMGEN-SVKSP2015135556

PATIENT
  Age: 62 Year
  Sex: Male
  Weight: 110 kg

DRUGS (8)
  1. DEGAN [Concomitant]
     Active Substance: METOCLOPRAMIDE HYDROCHLORIDE
     Dosage: UNK
     Dates: start: 201503, end: 201503
  2. METAMIZOLE [Concomitant]
     Active Substance: METAMIZOLE
  3. RANITAL                            /00550801/ [Concomitant]
     Dosage: UNK
     Dates: start: 201503, end: 201503
  4. NOVALGIN [Concomitant]
     Active Substance: METAMIZOLE SODIUM
  5. ENZALUTAMIDE [Concomitant]
     Active Substance: ENZALUTAMIDE
     Indication: PROSTATE CANCER
     Dosage: 160 MG, QD
     Route: 048
     Dates: start: 20140812
  6. EFLORAN [Concomitant]
     Dosage: UNK
     Dates: start: 2015, end: 2015
  7. XGEVA [Suspect]
     Active Substance: DENOSUMAB
     Indication: PRODUCT USED FOR UNKNOWN INDICATION
     Route: 065
  8. ZOLEDRONIC ACID [Suspect]
     Active Substance: ZOLEDRONIC ACID
     Indication: PROSTATE CANCER
     Dosage: UNK
     Route: 065
     Dates: start: 2012

REACTIONS (1)
  - Osteonecrosis of jaw [Not Recovered/Not Resolved]

NARRATIVE: CASE EVENT DATE: 20150329
